FAERS Safety Report 6236296-3 (Version None)
Quarter: 2009Q2

REPORT INFORMATION
  Report Type: 
  Country: None (occurrence: None)
  Receive Date: 20090619
  Receipt Date: 20090610
  Transmission Date: 20091009
  Serious: Yes (Other)
  Sender: FDA-Public Use
  Company Number: FR-ASTRAZENECA-2009CG01225

PATIENT
  Age: 48 Year
  Sex: Male

DRUGS (3)
  1. NEXIUM [Suspect]
     Indication: GASTROOESOPHAGEAL REFLUX DISEASE
     Route: 048
     Dates: end: 20090601
  2. CRESTOR [Suspect]
     Indication: DYSLIPIDAEMIA
     Route: 048
     Dates: end: 20090501
  3. BEFIZAL [Suspect]
     Indication: DYSLIPIDAEMIA
     Route: 048
     Dates: start: 20090501, end: 20090601

REACTIONS (1)
  - BLOOD CREATINE PHOSPHOKINASE INCREASED [None]
